FAERS Safety Report 5647940-3 (Version None)
Quarter: 2008Q1

REPORT INFORMATION
  Report Type: 
  Country: None (occurrence: None)
  Receive Date: 20080229
  Receipt Date: 20080218
  Transmission Date: 20080703
  Serious: Yes (Other)
  Sender: FDA-Public Use
  Company Number: US-JNJFOC-20080205787

PATIENT
  Age: 72 Year
  Sex: Female

DRUGS (17)
  1. DECITABINE (DECITABINE) LYOPHILIZED POWDER [Suspect]
     Indication: CHRONIC MYELOMONOCYTIC LEUKAEMIA
     Dosage: 20 MG/M2, INTRAVENOUS
     Route: 042
     Dates: start: 20080211, end: 20080214
  2. VALPROIC ACID [Suspect]
     Indication: CHRONIC MYELOMONOCYTIC LEUKAEMIA
     Dosage: 50 MG/KG, ORAL
     Route: 048
     Dates: start: 20080211, end: 20080214
  3. ATVIAN (LORAZEPAM) UNSPECIFIED [Suspect]
     Indication: ANXIETY
     Dosage: 1 MG, 1 IN 8 HOUR, ORAL
     Route: 048
  4. CLONAZEPAM [Suspect]
     Indication: DRUG USE FOR UNKNOWN INDICATION
     Dosage: 0.5 MG, 1 IN 1 DAY, ORAL
     Route: 048
  5. FEXOFENADINE [Suspect]
     Indication: DRUG USE FOR UNKNOWN INDICATION
     Dosage: 180 MG, 1 IN 1 DAY, ORAL
     Route: 048
  6. TRAMADOL (TRAMADOL) TABLETS [Suspect]
     Indication: PAIN
     Dosage: 1 DOSE (S), 1 IN 1 AS NECESSARY, ORAL
     Route: 048
  7. HYDROXYZINE [Suspect]
     Indication: DRUG USE FOR UNKNOWN INDICATION
     Dosage: 10 MG, IN 1 DAY, ORAL
     Route: 048
  8. COMBIVENT [Concomitant]
  9. FISH OIL (FISH OIL) [Concomitant]
  10. FOLIC ACID [Concomitant]
  11. METOPROLOL TARTRATE [Concomitant]
  12. NASONEX [Concomitant]
  13. ACETAMINOPHEN [Concomitant]
  14. ACETAMINOPHEN [Concomitant]
  15. VITAMIN D [Concomitant]
  16. MULTIVITAMIN [Concomitant]
  17. VITAMIN B-COMPLEX (VITAMIN B-COMPLEX) [Concomitant]

REACTIONS (5)
  - ACTIVITIES OF DAILY LIVING IMPAIRED [None]
  - CONFUSIONAL STATE [None]
  - DEPRESSED LEVEL OF CONSCIOUSNESS [None]
  - SOMNOLENCE [None]
  - UNRESPONSIVE TO STIMULI [None]
